FAERS Safety Report 4911785-X (Version None)
Quarter: 2006Q1

REPORT INFORMATION
  Report Type: 
  Country: None (occurrence: None)
  Receive Date: 20060213
  Receipt Date: 20060213
  Transmission Date: 20060701
  Serious: Yes (Hospitalization)
  Sender: FDA-Public Use
  Company Number: None

PATIENT
  Sex: Male

DRUGS (2)
  1. FAMOTIDINE [Suspect]
     Indication: PROPHYLAXIS
     Dosage: 20MG/BAG
     Dates: start: 20060207, end: 20060210
  2. FAMOTIDINE [Suspect]
     Indication: STRESS ULCER
     Dosage: 20MG/BAG
     Dates: start: 20060207, end: 20060210

REACTIONS (1)
  - PLATELET COUNT DECREASED [None]
